FAERS Safety Report 21575700 (Version 2)
Quarter: 2023Q1

REPORT INFORMATION
  Report Type: Spontaneous
  Country: PT (occurrence: PT)
  Receive Date: 20221110
  Receipt Date: 20230112
  Transmission Date: 20230417
  Serious: Yes (Hospitalization, Other)
  Sender: FDA-Public Use
  Company Number: PT-MYLANLABS-2022M1119241

PATIENT
  Age: 77 Year
  Sex: Female

DRUGS (4)
  1. METFORMIN [Interacting]
     Active Substance: METFORMIN HYDROCHLORIDE
     Indication: Type 2 diabetes mellitus
     Dosage: UNK
     Route: 065
  2. VENLAFAXINE [Interacting]
     Active Substance: VENLAFAXINE HYDROCHLORIDE
     Indication: Depression
     Dosage: UNK
     Route: 065
  3. CARBOPLATIN [Concomitant]
     Active Substance: CARBOPLATIN
     Indication: Lung adenocarcinoma
     Dosage: UNK
     Route: 065
  4. PACLITAXEL [Concomitant]
     Active Substance: PACLITAXEL
     Indication: Lung adenocarcinoma
     Dosage: UNK
     Route: 065

REACTIONS (7)
  - Inappropriate antidiuretic hormone secretion [Recovered/Resolved]
  - Decreased appetite [Recovered/Resolved]
  - Dysuria [Recovered/Resolved]
  - Abdominal pain lower [Recovered/Resolved]
  - Slow speech [Recovered/Resolved]
  - Asthenia [Recovered/Resolved]
  - Drug interaction [Unknown]
